FAERS Safety Report 10569757 (Version 7)
Quarter: 2015Q3

REPORT INFORMATION
  Report Type: Report from Study
  Country: CA (occurrence: CA)
  Receive Date: 20141107
  Receipt Date: 20150715
  Transmission Date: 20151125
  Serious: Yes (Life-Threatening, Hospitalization, Other)
  Sender: FDA-Public Use
  Company Number: CA-ROCHE-1431019

PATIENT
  Age: 67 Year
  Sex: Female

DRUGS (6)
  1. DIPHENHYDRAMINE HCL [Concomitant]
     Active Substance: DIPHENHYDRAMINE HYDROCHLORIDE
     Indication: PREMEDICATION
     Route: 048
     Dates: start: 20140616
  2. CELEBREX [Concomitant]
     Active Substance: CELECOXIB
     Route: 065
  3. METHYLPREDNISOLONE. [Concomitant]
     Active Substance: METHYLPREDNISOLONE
     Indication: PREMEDICATION
     Route: 042
     Dates: start: 20140616
  4. PREDNISONE. [Concomitant]
     Active Substance: PREDNISONE
     Route: 065
  5. RITUXAN [Suspect]
     Active Substance: RITUXIMAB
     Indication: RHEUMATOID ARTHRITIS
     Dosage: FREQUENCY:  DAY 1, 15
     Route: 042
     Dates: start: 20140616
  6. ACETAMINOPHEN. [Concomitant]
     Active Substance: ACETAMINOPHEN
     Indication: PREMEDICATION
     Route: 048
     Dates: start: 20140616

REACTIONS (5)
  - Myocardial infarction [Recovering/Resolving]
  - Localised infection [Unknown]
  - Pneumothorax [Recovering/Resolving]
  - Incision site infection [Not Recovered/Not Resolved]
  - Pleural infection [Not Recovered/Not Resolved]

NARRATIVE: CASE EVENT DATE: 20140630
